FAERS Safety Report 21873191 (Version 1)
Quarter: 2023Q1

REPORT INFORMATION
  Report Type: Spontaneous
  Country: US (occurrence: US)
  Receive Date: 20230117
  Receipt Date: 20230117
  Transmission Date: 20230418
  Serious: No
  Sender: FDA-Public Use
  Company Number: US-PFIZER INC-202300016403

PATIENT
  Age: 67 Year
  Sex: Female

DRUGS (3)
  1. PAXLOVID [Suspect]
     Active Substance: NIRMATRELVIR\RITONAVIR
     Indication: COVID-19 treatment
     Dosage: UNK
     Dates: start: 20221130, end: 20221204
  2. DOXIL [Concomitant]
     Active Substance: DOXORUBICIN HYDROCHLORIDE
     Dosage: UNK
     Dates: start: 20221123, end: 20221123
  3. AVASTIN [Concomitant]
     Active Substance: BEVACIZUMAB
     Dosage: UNK
     Dates: start: 20221123, end: 20221123

REACTIONS (2)
  - COVID-19 [Recovered/Resolved]
  - Disease recurrence [Recovered/Resolved]

NARRATIVE: CASE EVENT DATE: 20221209
